FAERS Safety Report 23324800 (Version 3)
Quarter: 2024Q1

REPORT INFORMATION
  Report Type: Other
  Country: US (occurrence: None)
  Receive Date: 20231221
  Receipt Date: 20240105
  Transmission Date: 20240410
  Serious: No
  Sender: FDA-Public Use
  Company Number: US-ROCHE-3478709

PATIENT
  Age: 74 Year
  Sex: Female
  Weight: 65.83 kg

DRUGS (12)
  1. OCREVUS [Suspect]
     Active Substance: OCRELIZUMAB
     Indication: Multiple sclerosis
     Dosage: ANTICIPATED DATE OF TREATMENT: 12/DEC/2023
     Route: 042
     Dates: start: 20231130
  2. ASPIRIN [Concomitant]
     Active Substance: ASPIRIN
  3. PAROXETINE HYDROCHLORIDE [Concomitant]
     Active Substance: PAROXETINE HYDROCHLORIDE\PAROXETINE HYDROCHLORIDE ANHYDROUS
  4. RAMELTEON [Concomitant]
     Active Substance: RAMELTEON
  5. CARBIDOPA [Concomitant]
     Active Substance: CARBIDOPA
  6. ATORVASTATIN [Concomitant]
     Active Substance: ATORVASTATIN
  7. HYDROCHLOROTHIAZIDE\LISINOPRIL [Concomitant]
     Active Substance: HYDROCHLOROTHIAZIDE\LISINOPRIL
  8. MODERNA COVID-19 VACCINE [Concomitant]
     Active Substance: ELASOMERAN
  9. CARVEDILOL [Concomitant]
     Active Substance: CARVEDILOL
  10. BENADRYL [Concomitant]
     Active Substance: DIPHENHYDRAMINE HYDROCHLORIDE
  11. SOLU-MEDROL [Concomitant]
     Active Substance: METHYLPREDNISOLONE SODIUM SUCCINATE
  12. ACETAMINOPHEN [Concomitant]
     Active Substance: ACETAMINOPHEN

REACTIONS (3)
  - COVID-19 [Recovered/Resolved]
  - Insomnia [Recovered/Resolved]
  - Off label use [Unknown]

NARRATIVE: CASE EVENT DATE: 20231207
